FAERS Safety Report 4497233-5 (Version None)
Quarter: 2004Q3

REPORT INFORMATION
  Report Type: 
  Country: None (occurrence: None)
  Receive Date: 20040927
  Receipt Date: 20040624
  Transmission Date: 20050211
  Serious: No
  Sender: FDA-Public Use
  Company Number: USA040671043

PATIENT
  Age: 9 Year
  Sex: Male
  Weight: 27 kg

DRUGS (2)
  1. STRATTERA [Suspect]
     Dosage: 40 MG DAY
     Dates: start: 20040618
  2. RITALIN (METYLPHENIDATE HYDROCHLORIDE) [Concomitant]

REACTIONS (3)
  - FATIGUE [None]
  - PRESCRIBED OVERDOSE [None]
  - SOMNOLENCE [None]
